FAERS Safety Report 6148743-6 (Version None)
Quarter: 2009Q2

REPORT INFORMATION
  Report Type: 
  Country: None (occurrence: None)
  Receive Date: 20090408
  Receipt Date: 20090331
  Transmission Date: 20091009
  Serious: Yes (Hospitalization)
  Sender: FDA-Public Use
  Company Number: US-B.I. PHARMACEUTICALS,INC./RIDGEFIELD-2007-BP-24042BP

PATIENT
  Sex: Female
  Weight: 73 kg

DRUGS (24)
  1. SPIRIVA [Suspect]
     Indication: CHRONIC OBSTRUCTIVE PULMONARY DISEASE
     Dosage: 18MCG
     Route: 055
     Dates: start: 20060101
  2. SPIRIVA [Suspect]
     Indication: DRUG INEFFECTIVE
  3. SPIRIVA [Suspect]
     Indication: DYSPNOEA
  4. ACTONEL [Concomitant]
     Indication: OSTEOPOROSIS PROPHYLAXIS
     Dates: start: 20040101
  5. ACTONEL [Concomitant]
     Indication: BONE DISORDER
  6. ALTACE [Concomitant]
     Indication: CARDIAC DISORDER
  7. ALTACE [Concomitant]
     Indication: ATRIAL FIBRILLATION
  8. COUMADIN [Concomitant]
     Indication: ATRIAL FIBRILLATION
  9. LASIX [Concomitant]
     Indication: CARDIAC DISORDER
  10. LASIX [Concomitant]
     Indication: ATRIAL FIBRILLATION
  11. ALBUTEROL [Concomitant]
     Indication: CHRONIC OBSTRUCTIVE PULMONARY DISEASE
  12. LYRICA [Concomitant]
     Indication: HERPES ZOSTER
  13. SYNTHROID [Concomitant]
     Indication: HYPOTHYROIDISM
  14. SYNTHROID [Concomitant]
     Indication: BASEDOW'S DISEASE
  15. TOPROL-XL [Concomitant]
     Indication: HYPERTENSION
  16. TOPROL-XL [Concomitant]
     Indication: ATRIAL FIBRILLATION
  17. ZETIA [Concomitant]
     Indication: BLOOD CHOLESTEROL INCREASED
  18. EYE DROPS [Concomitant]
  19. OXYGEN [Concomitant]
     Indication: DYSPNOEA
     Dates: start: 20040101
  20. TRUSOPT [Concomitant]
     Indication: EYE DISORDER
  21. ALPHAGAN [Concomitant]
  22. MULTIVITAMIN [Concomitant]
     Indication: EYE DISORDER
  23. OSCAL + D [Concomitant]
     Indication: BONE DISORDER
  24. XALATAN [Concomitant]
     Indication: EYE DISORDER

REACTIONS (2)
  - DYSPNOEA [None]
  - VISUAL ACUITY REDUCED [None]
